FAERS Safety Report 8149141-6 (Version None)
Quarter: 2012Q1

REPORT INFORMATION
  Report Type: 
  Country: None (occurrence: None)
  Receive Date: 20120218
  Receipt Date: 20110927
  Transmission Date: 20120608
  Serious: No
  Sender: FDA-Public Use
  Company Number: US-ALLERGAN-1111471US

PATIENT
  Age: 51 Year
  Sex: Female

DRUGS (3)
  1. JUVEDERM XC [Suspect]
     Indication: PRODUCT USED FOR UNKNOWN INDICATION
     Dosage: UNK
     Route: 030
     Dates: start: 20110818, end: 20110818
  2. BOTOX COSMETIC [Suspect]
     Indication: SKIN WRINKLING
     Dosage: 40 UNITS, SINGLE 15 FOREHEAD AND 25 GLABELLA
     Route: 030
     Dates: start: 20110818, end: 20110818
  3. ANESTHETICS [Concomitant]
     Indication: PRODUCT USED FOR UNKNOWN INDICATION
     Dosage: UNK
     Route: 061

REACTIONS (2)
  - INJECTION SITE MASS [None]
  - DRUG INEFFECTIVE [None]
